FAERS Safety Report 4291614-0 (Version None)
Quarter: 2004Q1

REPORT INFORMATION
  Report Type: 
  Country: None (occurrence: None)
  Receive Date: 20040211
  Receipt Date: 20031022
  Transmission Date: 20041129
  Serious: No
  Sender: FDA-Public Use
  Company Number: US-GLAXOSMITHKLINE-A0431192A

PATIENT

DRUGS (1)
  1. IMITREX [Suspect]
     Route: 065

REACTIONS (1)
  - ATRIAL FIBRILLATION [None]
